FAERS Safety Report 7704759-7 (Version None)
Quarter: 2011Q3

REPORT INFORMATION
  Report Type: 
  Country: None (occurrence: None)
  Receive Date: 20110823
  Receipt Date: 20110811
  Transmission Date: 20111222
  Serious: Yes (Hospitalization)
  Sender: FDA-Public Use
  Company Number: US-JNJFOC-20100406861

PATIENT
  Sex: Female
  Weight: 27.8 kg

DRUGS (6)
  1. INFLIXIMAB [Suspect]
     Indication: CROHN'S DISEASE
     Route: 042
     Dates: start: 20070329
  2. MESALAMINE [Concomitant]
     Route: 048
  3. INFLIXIMAB [Suspect]
     Route: 042
     Dates: start: 20090903
  4. MULTI-VITAMINS [Concomitant]
  5. FERROUS SULFATE TAB [Concomitant]
  6. FOLIC ACID [Concomitant]

REACTIONS (3)
  - VULVAL ABSCESS [None]
  - RECTAL ABSCESS [None]
  - CROHN'S DISEASE [None]
